FAERS Safety Report 22095952 (Version 1)
Quarter: 2023Q1

REPORT INFORMATION
  Report Type: Spontaneous
  Country: US (occurrence: US)
  Receive Date: 20230315
  Receipt Date: 20230315
  Transmission Date: 20230418
  Serious: No
  Sender: FDA-Public Use
  Company Number: US-AMGEN-USASP2023042845

PATIENT
  Sex: Female

DRUGS (25)
  1. OTEZLA [Suspect]
     Active Substance: APREMILAST
     Indication: Psoriatic arthropathy
     Dosage: 30 MILLIGRAM, BID
     Route: 048
  2. TYLENOL [Concomitant]
     Active Substance: ACETAMINOPHEN
  3. IRON [Concomitant]
     Active Substance: IRON
  4. FOLIC ACID [Concomitant]
     Active Substance: FOLIC ACID
  5. CARVEDILOL [Concomitant]
     Active Substance: CARVEDILOL
  6. VITAMIN C [Concomitant]
     Active Substance: ASCORBIC ACID
  7. ESCITALOPRAM [Concomitant]
     Active Substance: ESCITALOPRAM OXALATE
  8. FUROSEMIDE [Concomitant]
     Active Substance: FUROSEMIDE
  9. VITAMIN D [Concomitant]
     Active Substance: VITAMIN D NOS
  10. LORATADINE [Concomitant]
     Active Substance: LORATADINE
  11. DIPHENHYDRAMINE [Concomitant]
     Active Substance: DIPHENHYDRAMINE
  12. METFORMIN HYDROCHLORIDE [Concomitant]
     Active Substance: METFORMIN HYDROCHLORIDE
  13. MELATONIN [Concomitant]
     Active Substance: MELATONIN
  14. ENTRESTO [Concomitant]
     Active Substance: SACUBITRIL\VALSARTAN
  15. LETROZOLE [Concomitant]
     Active Substance: LETROZOLE
  16. GABAPENTIN [Concomitant]
     Active Substance: GABAPENTIN
  17. LEFLUNOMIDE [Concomitant]
     Active Substance: LEFLUNOMIDE
  18. CALCIUM CITRATE [Concomitant]
     Active Substance: CALCIUM CITRATE
  19. HERBALS\TURMERIC [Concomitant]
     Active Substance: HERBALS\TURMERIC
  20. TRAMADOL HCL [Concomitant]
     Active Substance: TRAMADOL HYDROCHLORIDE
  21. COENZYME Q10 [Concomitant]
     Active Substance: DIETARY SUPPLEMENT\UBIDECARENONE
  22. JARDIANCE [Concomitant]
     Active Substance: EMPAGLIFLOZIN
  23. SPIRONOLACTONE [Concomitant]
     Active Substance: SPIRONOLACTONE
  24. ATORVASTATIN [Concomitant]
     Active Substance: ATORVASTATIN
  25. ELIQUIS [Concomitant]
     Active Substance: APIXABAN

REACTIONS (1)
  - Diarrhoea [Unknown]
